FAERS Safety Report 17289900 (Version 2)
Quarter: 2020Q3

REPORT INFORMATION
  Report Type: Report from Study
  Country: FR (occurrence: FR)
  Receive Date: 20200120
  Receipt Date: 20200419
  Transmission Date: 20201104
  Serious: Yes (Hospitalization)
  Sender: FDA-Public Use
  Company Number: FR-ALEXION PHARMACEUTICALS INC.-A202000196

PATIENT
  Age: 63 Year
  Sex: Male
  Weight: 81 kg

DRUGS (17)
  1. OROCAL D3 [Concomitant]
     Active Substance: CALCIUM CARBONATE\CHOLECALCIFEROL
     Indication: VITAMIN SUPPLEMENTATION
     Dosage: 500 MG, QD
     Route: 048
     Dates: start: 20150302
  2. LYSANXIA [Concomitant]
     Active Substance: PRAZEPAM
     Indication: ANXIETY
     Dosage: 10 MG, BID
     Route: 048
     Dates: start: 20150722
  3. EFFEXOR [Concomitant]
     Active Substance: VENLAFAXINE HYDROCHLORIDE
     Indication: DEPRESSION
     Dosage: 75 MG, BID
     Route: 048
     Dates: start: 20150401
  4. ELIQUIS [Concomitant]
     Active Substance: APIXABAN
     Indication: ANTICOAGULANT THERAPY
     Dosage: 5 MG, BID
     Route: 048
     Dates: start: 20170913
  5. VITAMIN B12 [Concomitant]
     Active Substance: CYANOCOBALAMIN
     Indication: PRODUCT USED FOR UNKNOWN INDICATION
     Dosage: 1000 ?G, QW
     Route: 048
  6. ANTI?DIARRHEAL [Concomitant]
     Active Substance: LOPERAMIDE HYDROCHLORIDE
     Indication: GASTROENTERITIS
     Route: 065
     Dates: start: 20200104, end: 20200106
  7. RAVULIZUMAB. [Suspect]
     Active Substance: RAVULIZUMAB
     Indication: PAROXYSMAL NOCTURNAL HAEMOGLOBINURIA
     Dosage: 2700 MG, UNK
     Route: 042
     Dates: start: 20190326
  8. SPECIAFOLDINE [Concomitant]
     Active Substance: FOLIC ACID
     Indication: HAEMOGLOBINURIA
     Dosage: 5 MG, QW
     Route: 048
     Dates: start: 20150930
  9. UVEDOSE [Concomitant]
     Active Substance: CHOLECALCIFEROL
     Indication: OSTEOPENIA
     Dosage: 1 EVERY 2 MONTHS
     Route: 048
     Dates: start: 201503
  10. MESTINON [Concomitant]
     Active Substance: PYRIDOSTIGMINE BROMIDE
     Indication: MUSCULAR WEAKNESS
  11. ORACILLIN                          /00001802/ [Concomitant]
     Active Substance: PENICILLIN V POTASSIUM
     Indication: PROPHYLAXIS
     Dosage: 1000000 IU, BID
     Route: 048
     Dates: start: 20140109
  12. SOLUPRED                           /00016201/ [Concomitant]
     Active Substance: PREDNISOLONE
     Indication: MUSCULAR WEAKNESS
     Dosage: 20 MG, QD
     Route: 048
     Dates: start: 2016
  13. INEXIUM                            /01479302/ [Concomitant]
     Active Substance: ESOMEPRAZOLE MAGNESIUM
     Indication: PRODUCT USED FOR UNKNOWN INDICATION
     Dosage: 40 MG, QD
     Route: 048
     Dates: start: 2010
  14. MESTINON [Concomitant]
     Active Substance: PYRIDOSTIGMINE BROMIDE
     Indication: MUSCULAR WEAKNESS
     Dosage: 60 MG, Q3H
     Route: 048
     Dates: start: 201509
  15. RAVULIZUMAB. [Suspect]
     Active Substance: RAVULIZUMAB
     Dosage: 2700 MG, UNK
     Route: 058
     Dates: start: 20191231
  16. NORSET [Concomitant]
     Active Substance: MIRTAZAPINE
     Indication: DEPRESSION
     Dosage: 15 MG, QD
     Route: 048
     Dates: start: 20160406
  17. SILODYX [Concomitant]
     Active Substance: SILODOSIN
     Indication: URETERAL POLYP
     Dosage: 8 MG, QD
     Route: 048
     Dates: start: 20151013

REACTIONS (1)
  - Anaemia [Recovered/Resolved]

NARRATIVE: CASE EVENT DATE: 20200107
